FAERS Safety Report 7898077-4 (Version None)
Quarter: 2011Q4

REPORT INFORMATION
  Report Type: 
  Country: None (occurrence: None)
  Receive Date: 20111107
  Receipt Date: 20111102
  Transmission Date: 20120403
  Serious: Yes (Other)
  Sender: FDA-Public Use
  Company Number: NL-PFIZER INC-2011265193

PATIENT
  Age: 64 Year
  Sex: Male
  Weight: 88 kg

DRUGS (3)
  1. METOPROLOL TARTRATE [Interacting]
     Dosage: 50 MG, 2X/DAY
     Dates: start: 20060101
  2. AMLODIPINE BESYLATE [Suspect]
     Dosage: 5 MG, 1X/DAY
     Dates: start: 20100103
  3. LOSARTAN POTASSIUM AND HYDROCHLOROTHIAZIDE [Concomitant]
     Dosage: 1 DF, 1X/DAY
     Dates: start: 20020101

REACTIONS (2)
  - BRADYCARDIA [None]
  - POTENTIATING DRUG INTERACTION [None]
